FAERS Safety Report 6986357-6 (Version None)
Quarter: 2010Q3

REPORT INFORMATION
  Report Type: 
  Country: None (occurrence: None)
  Receive Date: 20100915
  Receipt Date: 20090721
  Transmission Date: 20110219
  Serious: No
  Sender: FDA-Public Use
  Company Number: US-WYE-H09912209

PATIENT
  Sex: Female
  Weight: 72.64 kg

DRUGS (5)
  1. PRISTIQ [Suspect]
     Indication: DEPRESSION
     Route: 048
     Dates: start: 20090608
  2. ALPRAZOLAM [Concomitant]
  3. DOXYCYCLINE [Concomitant]
  4. KLONOPIN [Concomitant]
  5. TYLENOL [Concomitant]

REACTIONS (2)
  - MALABSORPTION [None]
  - MEDICATION RESIDUE [None]
